FAERS Safety Report 4688601-7 (Version None)
Quarter: 2005Q2

REPORT INFORMATION
  Report Type: 
  Country: None (occurrence: None)
  Receive Date: 20050613
  Receipt Date: 20050603
  Transmission Date: 20051028
  Serious: Yes (Hospitalization, Other)
  Sender: FDA-Public Use
  Company Number: PHEH2005US06304

PATIENT
  Sex: Male

DRUGS (2)
  1. LOTREL [Suspect]
  2. AVANDIA [Suspect]
     Indication: DIABETES MELLITUS NON-INSULIN-DEPENDENT

REACTIONS (5)
  - CARDIAC FAILURE [None]
  - DRUG INTERACTION [None]
  - DYSPNOEA [None]
  - FLUID RETENTION [None]
  - OEDEMA PERIPHERAL [None]
